FAERS Safety Report 7016956-7 (Version None)
Quarter: 2010Q3

REPORT INFORMATION
  Report Type: 
  Country: None (occurrence: None)
  Receive Date: 20100927
  Receipt Date: 20100915
  Transmission Date: 20110219
  Serious: No
  Sender: FDA-Public Use
  Company Number: US-PFIZER INC-2010117158

PATIENT
  Sex: Female
  Weight: 86.168 kg

DRUGS (5)
  1. CHANTIX [Suspect]
     Indication: SMOKING CESSATION THERAPY
     Dosage: 0.5 MG, DAILY
     Route: 048
     Dates: start: 20100816
  2. PROZAC [Concomitant]
     Indication: DEPRESSION
     Dosage: 20 MG, 3X/DAY
  3. TOPAMAX [Concomitant]
     Indication: DEPRESSION
     Dosage: 50 MG, 4X/DAY
  4. TRAZODONE [Concomitant]
     Indication: SLEEP DISORDER
     Dosage: 150 MG, DAILY
  5. ABILIFY [Concomitant]
     Indication: DEPRESSION
     Dosage: 15 MG, DAILY

REACTIONS (2)
  - BLOOD CHOLESTEROL INCREASED [None]
  - INSOMNIA [None]
